FAERS Safety Report 4424946-3 (Version None)
Quarter: 2004Q3

REPORT INFORMATION
  Report Type: 
  Country: None (occurrence: None)
  Receive Date: 20040719
  Receipt Date: 20040121
  Transmission Date: 20050211
  Serious: Yes (Hospitalization)
  Sender: FDA-Public Use
  Company Number: 160466

PATIENT
  Age: 48 Year
  Sex: Female
  Weight: 68.0396 kg

DRUGS (4)
  1. AVONEX [Suspect]
     Indication: MULTIPLE SCLEROSIS
     Dosage: 30 MCG QW IM
     Dates: start: 20011201
  2. KLOR-CON [Concomitant]
  3. FUROSEMIDE [Concomitant]
  4. IRON (NOS) [Concomitant]

REACTIONS (1)
  - UTERINE LEIOMYOMA [None]
